FAERS Safety Report 21832413 (Version 1)
Quarter: 2023Q1

REPORT INFORMATION
  Report Type: Spontaneous
  Country: US (occurrence: US)
  Receive Date: 20230106
  Receipt Date: 20230106
  Transmission Date: 20230417
  Serious: No
  Sender: FDA-Public Use
  Company Number: US-ALLERGAN-2232022US

PATIENT
  Age: 45 Year
  Sex: Female

DRUGS (2)
  1. QULIPTA [Suspect]
     Active Substance: ATOGEPANT
     Indication: Constipation
     Dosage: 60 MG
     Route: 048
     Dates: start: 20220924
  2. QULIPTA [Suspect]
     Active Substance: ATOGEPANT
     Indication: Abdominal discomfort

REACTIONS (1)
  - Abdominal discomfort [Recovering/Resolving]

NARRATIVE: CASE EVENT DATE: 20220901
